FAERS Safety Report 5005625-0 (Version None)
Quarter: 2006Q2

REPORT INFORMATION
  Report Type: 
  Country: None (occurrence: None)
  Receive Date: 20060515
  Receipt Date: 20060427
  Transmission Date: 20061013
  Serious: Yes (Hospitalization)
  Sender: FDA-Public Use
  Company Number: 145638USA

PATIENT
  Sex: Female

DRUGS (3)
  1. PROCHLORPERAZINE [Suspect]
     Indication: NAUSEA
     Dosage: 10 MILLIGRAM
     Dates: start: 20051101, end: 20051101
  2. LEXAPRO [Concomitant]
  3. ALPRAZOLAM [Concomitant]

REACTIONS (6)
  - ANGER [None]
  - ANXIETY [None]
  - DEPRESSION [None]
  - PAIN IN EXTREMITY [None]
  - TREMOR [None]
  - TRISMUS [None]
